FAERS Safety Report 4956585-X (Version None)
Quarter: 2006Q1

REPORT INFORMATION
  Report Type: 
  Country: None (occurrence: None)
  Receive Date: 20060329
  Receipt Date: 20050414
  Transmission Date: 20060701
  Serious: Yes (Hospitalization, Disabling, Other)
  Sender: FDA-Public Use
  Company Number: US-MERCK-0504USA02818

PATIENT
  Age: 55 Year
  Sex: Female
  Weight: 68 kg

DRUGS (13)
  1. VIOXX [Suspect]
     Indication: ARTHRALGIA
     Route: 048
     Dates: start: 20010101, end: 20040901
  2. VIOXX [Suspect]
     Indication: ARTHRITIS
     Route: 048
     Dates: start: 20010101, end: 20040901
  3. ECOTRIN [Concomitant]
     Route: 048
  4. LIPITOR [Concomitant]
     Route: 048
  5. DIOVAN [Concomitant]
     Route: 048
  6. TIAZAC [Concomitant]
     Route: 048
  7. ADVAIR DISKUS 100/50 [Concomitant]
     Route: 055
  8. VICODIN [Concomitant]
     Route: 065
  9. CARDIZEM [Concomitant]
     Route: 065
  10. COZAAR [Concomitant]
     Route: 065
  11. PLAVIX [Concomitant]
     Route: 065
  12. PAXIL [Concomitant]
     Indication: ANXIETY
     Route: 065
  13. PAXIL [Concomitant]
     Indication: DEPRESSION
     Route: 065

REACTIONS (17)
  - ANGINA PECTORIS [None]
  - BLOOD TESTOSTERONE INCREASED [None]
  - CORONARY ARTERY OCCLUSION [None]
  - CORONARY ARTERY STENOSIS [None]
  - DYSPNOEA [None]
  - ENLARGED CLITORIS [None]
  - HIRSUTISM [None]
  - HYSTEROSALPINGO-OOPHORECTOMY [None]
  - INJURY [None]
  - ISCHAEMIC CARDIOMYOPATHY [None]
  - MYOCARDIAL INFARCTION [None]
  - OVARIAN DISORDER [None]
  - THYROID NEOPLASM [None]
  - UTERINE DISORDER [None]
  - VIRILISM [None]
  - VOCAL CORD DISORDER [None]
  - VOCAL CORD THICKENING [None]
